FAERS Safety Report 4437432-1 (Version None)
Quarter: 2004Q3

REPORT INFORMATION
  Report Type: 
  Country: None (occurrence: None)
  Receive Date: 20040830
  Receipt Date: 20040824
  Transmission Date: 20050211
  Serious: Yes (Other)
  Sender: FDA-Public Use
  Company Number: PHBS2004JP11094

PATIENT
  Age: 74 Year
  Sex: Male

DRUGS (5)
  1. DIOVAN [Suspect]
     Indication: HYPERTENSION
     Dosage: 80 MG/DAY
     Route: 048
     Dates: end: 20040805
  2. MEVALOTIN [Suspect]
     Dosage: 10 MG/DAY
     Route: 048
     Dates: end: 20040708
  3. AVISHOT [Concomitant]
     Route: 048
  4. DENISPAN [Concomitant]
     Route: 048
  5. PERSELIN [Concomitant]
     Route: 048

REACTIONS (1)
  - BLOOD CREATINE PHOSPHOKINASE INCREASED [None]
